FAERS Safety Report 5235560-4 (Version None)
Quarter: 2007Q1

REPORT INFORMATION
  Report Type: 
  Country: None (occurrence: None)
  Receive Date: 20070212
  Receipt Date: 20070130
  Transmission Date: 20070707
  Serious: Yes (Other)
  Sender: FDA-Public Use
  Company Number: NO-ROCHE-478255

PATIENT
  Age: 23 Year
  Sex: Female
  Weight: 55 kg

DRUGS (1)
  1. ROACCUTAN [Suspect]
     Indication: ACNE
     Dosage: REPORTED AS TAKING 40MG AND 60MG ALTERNATING EVERY SECOND DAY.
     Route: 048
     Dates: start: 20060515, end: 20061112

REACTIONS (1)
  - PREGNANCY [None]
